FAERS Safety Report 7028734-3 (Version None)
Quarter: 2010Q4

REPORT INFORMATION
  Report Type: 
  Country: None (occurrence: None)
  Receive Date: 20101004
  Receipt Date: 20101004
  Transmission Date: 20110411
  Serious: Yes (Other)
  Sender: FDA-Public Use
  Company Number: None

PATIENT
  Sex: Female
  Weight: 67.1324 kg

DRUGS (1)
  1. SUMATRIPTAN SUCCINATE [Suspect]
     Indication: MIGRAINE
     Dates: start: 20100924, end: 20100924

REACTIONS (4)
  - DRUG ERUPTION [None]
  - PRODUCT LABEL ISSUE [None]
  - RASH GENERALISED [None]
  - URTICARIA [None]
